FAERS Safety Report 16631054 (Version 1)
Quarter: 2019Q3

REPORT INFORMATION
  Report Type: Report from Study
  Country: US (occurrence: US)
  Receive Date: 20190725
  Receipt Date: 20190725
  Transmission Date: 20191004
  Serious: Yes (Death)
  Sender: FDA-Public Use
  Company Number: US-TESARO-2019-TSO02491-US

PATIENT
  Sex: Female

DRUGS (1)
  1. ZEJULA [Suspect]
     Active Substance: NIRAPARIB
     Indication: OVARIAN CANCER
     Dosage: 200 MG, QD
     Route: 048
     Dates: start: 20190620

REACTIONS (5)
  - Fatigue [Unknown]
  - Blood urine present [Unknown]
  - Blood pressure increased [Unknown]
  - Death [Fatal]
  - Vomiting [Unknown]
